FAERS Safety Report 13683691 (Version 1)
Quarter: 2017Q2

REPORT INFORMATION
  Report Type: Spontaneous
  Country: US (occurrence: US)
  Receive Date: 20170623
  Receipt Date: 20170623
  Transmission Date: 20170830
  Serious: Yes (Disabling, Other)
  Sender: FDA-Public Use
  Company Number: US-JAZZ-2017-US-007928

PATIENT
  Sex: Female

DRUGS (2)
  1. XYREM [Suspect]
     Active Substance: SODIUM OXYBATE
     Dosage: 2.5 G, BID
     Route: 048
     Dates: start: 200802
  2. XYREM [Suspect]
     Active Substance: SODIUM OXYBATE
     Indication: NARCOLEPSY
     Dosage: 2.5-4.5 G BID
     Route: 048
     Dates: start: 200712, end: 200801

REACTIONS (5)
  - Paradoxical drug reaction [Not Recovered/Not Resolved]
  - Brain neoplasm [Unknown]
  - Disability [Not Recovered/Not Resolved]
  - Hallucination [Unknown]
  - Fear [Unknown]
